FAERS Safety Report 24708897 (Version 1)
Quarter: 2024Q4

REPORT INFORMATION
  Report Type: Spontaneous
  Country: US (occurrence: US)
  Receive Date: 20241207
  Receipt Date: 20241207
  Transmission Date: 20250115
  Serious: No
  Sender: SANOFI AVENTIS
  Company Number: US-SA-2024SA361088

PATIENT
  Age: 11 Year
  Sex: Female
  Weight: 42.5 kg

DRUGS (1)
  1. DUPIXENT [Suspect]
     Active Substance: DUPILUMAB
     Indication: Illness
     Dosage: 400 MG, 1X
     Route: 058

REACTIONS (4)
  - Dermatitis [Unknown]
  - Asthma [Unknown]
  - Ocular hyperaemia [Unknown]
  - Hypersensitivity [Unknown]
